FAERS Safety Report 13024236 (Version 2)
Quarter: 2017Q3

REPORT INFORMATION
  Report Type: Spontaneous
  Country: US (occurrence: US)
  Receive Date: 20161213
  Receipt Date: 20170901
  Transmission Date: 20171127
  Serious: Yes (Other)
  Sender: FDA-Public Use
  Company Number: US-TEVA-718997USA

PATIENT
  Age: 75 Year
  Sex: Female
  Weight: 59 kg

DRUGS (1)
  1. CARTIA XT [Suspect]
     Active Substance: DILTIAZEM HYDROCHLORIDE
     Dates: start: 20160617

REACTIONS (5)
  - Demyelination [Unknown]
  - Diplopia [Unknown]
  - Pruritus generalised [Unknown]
  - Cheilitis [Unknown]
  - Exfoliation syndrome [Unknown]

NARRATIVE: CASE EVENT DATE: 201612
